FAERS Safety Report 11033012 (Version 2)
Quarter: 2015Q2

REPORT INFORMATION
  Report Type: Spontaneous
  Country: FR (occurrence: FR)
  Receive Date: 20150415
  Receipt Date: 20150420
  Transmission Date: 20150821
  Serious: Yes (Other)
  Sender: FDA-Public Use
  Company Number: FR-ASTRAZENECA-2014SE84969

PATIENT
  Age: 540 Month
  Sex: Female
  Weight: 85 kg

DRUGS (7)
  1. XEROQUEL [Suspect]
     Active Substance: QUETIAPINE FUMARATE
     Indication: BIPOLAR I DISORDER
     Dosage: DOSAGE INCREASED TO REACH 300 MG PER DAY
     Route: 048
     Dates: start: 20140222, end: 20140311
  2. VALIUM [Suspect]
     Active Substance: DIAZEPAM
     Route: 065
     Dates: start: 2012
  3. XEROQUEL [Suspect]
     Active Substance: QUETIAPINE FUMARATE
     Indication: BIPOLAR I DISORDER
     Route: 048
     Dates: start: 20140312, end: 20140530
  4. XEROQUEL [Suspect]
     Active Substance: QUETIAPINE FUMARATE
     Indication: BIPOLAR I DISORDER
     Route: 048
     Dates: start: 20140531, end: 201406
  5. DEPAKOTE [Concomitant]
     Active Substance: DIVALPROEX SODIUM
  6. LEVOTHYROX [Concomitant]
     Active Substance: LEVOTHYROXINE
  7. TEGRETOL [Suspect]
     Active Substance: CARBAMAZEPINE
     Route: 065
     Dates: start: 201406

REACTIONS (3)
  - Tachycardia [Recovered/Resolved]
  - Off label use [Recovered/Resolved]
  - Hypothyroidism [Recovered/Resolved]

NARRATIVE: CASE EVENT DATE: 201403
